FAERS Safety Report 6961409-5 (Version None)
Quarter: 2010Q3

REPORT INFORMATION
  Report Type: 
  Country: None (occurrence: None)
  Receive Date: 20100901
  Receipt Date: 20100823
  Transmission Date: 20110219
  Serious: Yes (Hospitalization)
  Sender: FDA-Public Use
  Company Number: PHHY2010JP46455

PATIENT
  Age: 59 Year
  Sex: Female

DRUGS (4)
  1. DICLOFENAC SODIUM [Suspect]
     Indication: RHEUMATOID ARTHRITIS
     Dosage: 75 MG PER DAY
     Dates: start: 20060601
  2. PREDNISOLONE [Suspect]
     Indication: RHEUMATOID ARTHRITIS
     Dosage: 5 MG PER DAY
  3. SULFASALAZINE [Suspect]
     Indication: RHEUMATOID ARTHRITIS
     Dosage: 1000 MG/ DAY
     Dates: start: 20060601
  4. METHOTREXATE [Suspect]
     Indication: RHEUMATOID ARTHRITIS
     Dosage: 8 MG PER WEEK

REACTIONS (6)
  - JOINT SURGERY [None]
  - MACULAR OEDEMA [None]
  - PNEUMONIA [None]
  - RETINAL DISORDER [None]
  - RETINAL VEIN OCCLUSION [None]
  - VISUAL ACUITY REDUCED [None]
